FAERS Safety Report 11726671 (Version 1)
Quarter: 2015Q4

REPORT INFORMATION
  Report Type: Spontaneous
  Country: US (occurrence: IT)
  Receive Date: 20151112
  Receipt Date: 20151112
  Transmission Date: 20160304
  Serious: Yes (Hospitalization)
  Sender: FDA-Public Use
  Company Number: US-MSD-1207ITA010347

PATIENT
  Sex: Female

DRUGS (3)
  1. SIMVASTATIN. [Suspect]
     Active Substance: SIMVASTATIN
     Route: 048
  2. ROCEFIN [Suspect]
     Active Substance: CEFTRIAXONE SODIUM
     Route: 030
  3. PANTOPAN [Suspect]
     Active Substance: PANTOPRAZOLE SODIUM
     Route: 048

REACTIONS (6)
  - Alanine aminotransferase increased [Unknown]
  - Asthenia [Unknown]
  - Aspartate aminotransferase increased [Unknown]
  - Gamma-glutamyltransferase increased [Unknown]
  - Blood lactate dehydrogenase increased [Unknown]
  - Pyrexia [Unknown]
